FAERS Safety Report 6034655-5 (Version None)
Quarter: 2009Q1

REPORT INFORMATION
  Report Type: 
  Country: None (occurrence: None)
  Receive Date: 20090112
  Receipt Date: 20090105
  Transmission Date: 20090719
  Serious: Yes (Life-Threatening)
  Sender: FDA-Public Use
  Company Number: AU-PFIZER INC-2008158606

PATIENT

DRUGS (7)
  1. SALAZOPYRIN [Suspect]
     Indication: RHEUMATOID ARTHRITIS
  2. PREDNISOLONE AND PREDNISOLONE STEAGLATE [Suspect]
  3. ENOXAPARIN SODIUM [Suspect]
     Indication: PHLEBITIS
     Route: 058
  4. OMEPRAZOLE [Suspect]
     Indication: OESOPHAGEAL DISORDER
     Route: 048
  5. ALDOMET [Concomitant]
     Indication: ESSENTIAL HYPERTENSION
     Dosage: 1 G, 1X/DAY
     Route: 048
  6. ACETYLSALICYLIC ACID [Concomitant]
     Indication: CEREBROVASCULAR DISORDER
     Dosage: 100 MG, 1X/DAY
  7. COVERSYL PLUS [Concomitant]
     Indication: ESSENTIAL HYPERTENSION
     Dosage: 1 DOSE DAILY
     Route: 048

REACTIONS (1)
  - NEUTROPENIA [None]
